FAERS Safety Report 7607319-1 (Version None)
Quarter: 2011Q3

REPORT INFORMATION
  Report Type: 
  Country: None (occurrence: None)
  Receive Date: 20110713
  Receipt Date: 20110706
  Transmission Date: 20111222
  Serious: Yes (Other)
  Sender: FDA-Public Use
  Company Number: US-ASTRAZENECA-2010SE37717

PATIENT
  Age: 67 Year
  Sex: Female

DRUGS (22)
  1. SYMBICORT [Suspect]
     Dosage: 160/4.5 1 PUFF, TWO TIMES A DAY
     Route: 055
  2. NEXIUM [Suspect]
     Route: 048
  3. LEXAPRO [Concomitant]
  4. MULTI-VITAMIN [Concomitant]
  5. RELAFEN [Concomitant]
  6. TRILIPIX [Concomitant]
  7. OXYCODONE HCL AND ACETAMINOPHEN [Concomitant]
     Dosage: 5/325 MG AS NEEDED
  8. OXYGEN [Concomitant]
     Dosage: NIGHTLY, 2L
  9. ESTRADIOL [Concomitant]
  10. CRESTOR [Suspect]
     Route: 048
  11. FOLIC ACID [Concomitant]
  12. LOVAZA [Concomitant]
  13. TRIAMTERENE AND HYDROCHLOROTHIAZIDE [Concomitant]
     Dosage: 37.5/12.5 MG 1PER DAY
  14. NEURONTIN [Concomitant]
  15. METHOTREXATE [Concomitant]
  16. NIASPAN [Concomitant]
  17. VENTOLIN HFA [Concomitant]
     Dosage: 1/2 PUFF EVERY 4 TO 6 HOURS AS NEEDED
  18. EVOXAC [Concomitant]
  19. LOTREL [Concomitant]
     Dosage: 5/20 1 PER DAY
  20. LEVOTHYROXINE [Concomitant]
  21. REMICADE [Concomitant]
     Dosage: EVERY 6 WEEKS
  22. VITAMIN D [Concomitant]

REACTIONS (8)
  - DYSPNOEA [None]
  - KNEE OPERATION [None]
  - JOINT DISLOCATION [None]
  - SYNOVIAL CYST [None]
  - DRUG DOSE OMISSION [None]
  - SPINAL FUSION SURGERY [None]
  - KNEE ARTHROPLASTY [None]
  - ETHMOID SINUS SURGERY [None]
